FAERS Safety Report 7304062-3 (Version None)
Quarter: 2011Q1

REPORT INFORMATION
  Report Type: 
  Country: None (occurrence: None)
  Receive Date: 20110221
  Receipt Date: 20110209
  Transmission Date: 20110831
  Serious: Yes (Other)
  Sender: FDA-Public Use
  Company Number: PHEH2009US03892

PATIENT
  Sex: Male

DRUGS (12)
  1. VELCADE [Concomitant]
  2. ALEVE [Concomitant]
  3. AREDIA [Suspect]
  4. ASCORBIC ACID [Concomitant]
  5. DIFLUCAN [Concomitant]
  6. VITAMIN B COMPLEX [Concomitant]
  7. LYSINE [Concomitant]
  8. CELEBREX [Concomitant]
  9. VICODIN [Concomitant]
  10. TRENTAL ^ALBERT-ROUSSEL^ [Concomitant]
  11. VITAMIN D [Concomitant]
  12. AVELOX [Concomitant]

REACTIONS (41)
  - OSTEONECROSIS OF JAW [None]
  - ANXIETY [None]
  - BONE DISORDER [None]
  - TOOTH ABSCESS [None]
  - ANHEDONIA [None]
  - PULMONARY VALVE STENOSIS [None]
  - GASTRITIS EROSIVE [None]
  - HIATUS HERNIA [None]
  - NASAL SEPTUM DEVIATION [None]
  - PAIN IN EXTREMITY [None]
  - ARTHROPOD BITE [None]
  - PAIN [None]
  - BLOOD CREATININE INCREASED [None]
  - RECTAL POLYP [None]
  - INTERVERTEBRAL DISC SPACE NARROWING [None]
  - GINGIVAL SWELLING [None]
  - MOUTH ULCERATION [None]
  - NEUTROPENIA [None]
  - FATIGUE [None]
  - ANAEMIA [None]
  - SYNCOPE [None]
  - GENERAL PHYSICAL HEALTH DETERIORATION [None]
  - OSTEOARTHRITIS [None]
  - UPPER RESPIRATORY TRACT INFECTION [None]
  - ENTEROVESICAL FISTULA [None]
  - INTERVERTEBRAL DISC DEGENERATION [None]
  - SPINAL OSTEOARTHRITIS [None]
  - SPONDYLOLISTHESIS [None]
  - ATRIAL SEPTAL DEFECT [None]
  - NEUROPATHY PERIPHERAL [None]
  - TENDONITIS [None]
  - DYSPNOEA [None]
  - HAEMORRHOIDS [None]
  - FAECES DISCOLOURED [None]
  - MUCOSAL INFLAMMATION [None]
  - RENAL FAILURE CHRONIC [None]
  - MUSCULAR WEAKNESS [None]
  - HYPERGAMMAGLOBULINAEMIA [None]
  - ARTHRALGIA [None]
  - DISABILITY [None]
  - SCOLIOSIS [None]
